FAERS Safety Report 6186233-5 (Version None)
Quarter: 2009Q2

REPORT INFORMATION
  Report Type: 
  Country: None (occurrence: None)
  Receive Date: 20090511
  Receipt Date: 20090430
  Transmission Date: 20091009
  Serious: Yes (Hospitalization)
  Sender: FDA-Public Use
  Company Number: PHHY2009DE04036

PATIENT
  Sex: Female

DRUGS (5)
  1. PROVAS [Suspect]
     Indication: HYPERTENSION
     Dosage: 160 MG, QD
     Dates: start: 20080101
  2. ATENOLOL [Concomitant]
  3. DIURETICS [Concomitant]
  4. BETA BLOCKING AGENTS [Concomitant]
  5. ASPIRIN [Concomitant]

REACTIONS (6)
  - BALANCE DISORDER [None]
  - GAIT DISTURBANCE [None]
  - HEADACHE [None]
  - OEDEMA PERIPHERAL [None]
  - PARAESTHESIA [None]
  - TINNITUS [None]
